FAERS Safety Report 4925708-0 (Version None)
Quarter: 2006Q1

REPORT INFORMATION
  Report Type: 
  Country: None (occurrence: None)
  Receive Date: 20060228
  Receipt Date: 20050127
  Transmission Date: 20060701
  Serious: Yes (Other)
  Sender: FDA-Public Use
  Company Number: US-GLAXOSMITHKLINE-A0542649A

PATIENT
  Age: 50 Year
  Sex: Female
  Weight: 66.4 kg

DRUGS (9)
  1. LAMICTAL [Suspect]
     Indication: BIPOLAR DISORDER
     Route: 048
     Dates: start: 20040924, end: 20041228
  2. LITHIUM CARBONATE [Concomitant]
     Route: 048
  3. ZANTAC [Concomitant]
     Dosage: 150MG TWICE PER DAY
     Dates: start: 20041013
  4. KLONOPIN [Concomitant]
     Dosage: 1MG AT NIGHT
     Route: 048
     Dates: start: 20040401
  5. ARTANE [Concomitant]
     Dosage: 2MG TWICE PER DAY
     Route: 048
     Dates: start: 20040930
  6. SEROQUEL [Concomitant]
     Dosage: 450MG AT NIGHT
     Route: 048
  7. MULTI-VITAMIN [Concomitant]
     Route: 048
  8. DEPAKOTE [Concomitant]
     Dosage: 1250MG PER DAY
     Route: 048
     Dates: start: 20040401, end: 20041028
  9. GEODON [Concomitant]
     Dosage: 80MG TWICE PER DAY
     Route: 048
     Dates: start: 20040727, end: 20041128

REACTIONS (1)
  - LEUKOPENIA [None]
